FAERS Safety Report 8034340-4 (Version None)
Quarter: 2012Q1

REPORT INFORMATION
  Report Type: 
  Country: None (occurrence: None)
  Receive Date: 20120110
  Receipt Date: 20120104
  Transmission Date: 20120608
  Serious: Yes (Hospitalization, Other)
  Sender: FDA-Public Use
  Company Number: PHHY2011FR10795

PATIENT
  Sex: Female

DRUGS (9)
  1. VOLTAREN [Suspect]
     Indication: RHEUMATOID ARTHRITIS
     Dosage: UNK
     Route: 048
     Dates: end: 20101208
  2. PREDNISONE TAB [Suspect]
     Dosage: 10 MG, UNK
  3. CORTICOSTEROID [Concomitant]
     Dosage: 60 MG DAILY
  4. HUMIRA [Suspect]
     Indication: RHEUMATOID ARTHRITIS
     Dosage: 1 DF, BIW
     Dates: start: 20101001, end: 20101208
  5. ACETAMINOPHEN W/ PROPOXYPHENE HCL [Suspect]
     Dosage: UNK
     Route: 048
     Dates: start: 20020101, end: 20101208
  6. CORTICOSTEROID [Concomitant]
     Indication: RHEUMATOID ARTHRITIS
     Dosage: 10 MG, PER DAY
  7. TRAMADOL HCL [Concomitant]
     Indication: PAIN
     Dosage: UNK
  8. METHOTREXATE [Suspect]
     Indication: RHEUMATOID ARTHRITIS
     Dosage: 15 MG, PER WEEK
     Route: 058
     Dates: start: 19910101, end: 20101208
  9. PERINDOPRIL [Concomitant]
     Indication: HYPERTENSION
     Dosage: UNK

REACTIONS (12)
  - VIRAL INFECTION [None]
  - HEPATIC FIBROSIS [None]
  - INFLAMMATION [None]
  - CHOLELITHIASIS [None]
  - RENAL HYPERTROPHY [None]
  - HEPATOMEGALY [None]
  - AUTOIMMUNE HEPATITIS [None]
  - CHRONIC HEPATITIS [None]
  - COUGH [None]
  - CUSHINGOID [None]
  - CYTOLYTIC HEPATITIS [None]
  - HEPATIC STEATOSIS [None]
